FAERS Safety Report 11595175 (Version 1)
Quarter: 2015Q4

REPORT INFORMATION
  Report Type: Spontaneous
  Country: US (occurrence: US)
  Receive Date: 20151006
  Receipt Date: 20151006
  Transmission Date: 20160304
  Serious: Yes (Other)
  Sender: FDA-Public Use
  Company Number: US-AMGEN-USASP2015102565

PATIENT
  Age: 64 Year
  Sex: Female

DRUGS (1)
  1. ENBREL [Suspect]
     Active Substance: ETANERCEPT
     Indication: RHEUMATOID ARTHRITIS
     Dosage: UNK
     Route: 065

REACTIONS (6)
  - Stress [Unknown]
  - Rheumatoid arthritis [Unknown]
  - Mobility decreased [Unknown]
  - Red blood cell sedimentation rate increased [Unknown]
  - Pain [Unknown]
  - Device allergy [Unknown]

NARRATIVE: CASE EVENT DATE: 20141228
